FAERS Safety Report 12621931 (Version 1)
Quarter: 2016Q3

REPORT INFORMATION
  Report Type: Spontaneous
  Country: US (occurrence: US)
  Receive Date: 20160804
  Receipt Date: 20160804
  Transmission Date: 20161109
  Serious: Yes (Hospitalization)
  Sender: FDA-Public Use
  Company Number: US-PFIZER INC-2016370387

PATIENT
  Age: 87 Year
  Sex: Female
  Weight: 44.91 kg

DRUGS (3)
  1. PURINOL [Concomitant]
     Active Substance: ALLOPURINOL
     Indication: HEADACHE
     Dosage: UP TO THREE TIMES A DAY
  2. AROMASIN [Suspect]
     Active Substance: EXEMESTANE
     Indication: BREAST CANCER
     Dosage: 25 MG, 1X/DAY
     Dates: start: 20160708, end: 20160727
  3. PURINOL [Concomitant]
     Active Substance: ALLOPURINOL
     Indication: NAUSEA

REACTIONS (10)
  - Fatigue [Recovering/Resolving]
  - Malaise [Unknown]
  - Musculoskeletal pain [Recovering/Resolving]
  - Neck pain [Recovering/Resolving]
  - Nausea [Recovering/Resolving]
  - Musculoskeletal discomfort [Recovering/Resolving]
  - Confusional state [Recovering/Resolving]
  - Weight decreased [Unknown]
  - Dizziness [Unknown]
  - Asthenia [Unknown]

NARRATIVE: CASE EVENT DATE: 201607
